FAERS Safety Report 4934881-X (Version None)
Quarter: 2006Q1

REPORT INFORMATION
  Report Type: 
  Country: None (occurrence: None)
  Receive Date: 20060302
  Receipt Date: 20060227
  Transmission Date: 20060701
  Serious: Yes (Hospitalization)
  Sender: FDA-Public Use
  Company Number: 2006ADE/DICLO-004

PATIENT
  Age: 69 Year
  Sex: Female

DRUGS (4)
  1. DICLOFENAC EPOLAMINE PATCH [Suspect]
     Indication: HEADACHE
     Dosage: ORAL
     Route: 048
  2. ACITERTIN [Concomitant]
  3. LEVOTHTROXINE SODIUM [Concomitant]
  4. PROPRANOLOL [Concomitant]

REACTIONS (1)
  - TOXIC EPIDERMAL NECROLYSIS [None]
